FAERS Safety Report 14573364 (Version 1)
Quarter: 2018Q1

REPORT INFORMATION
  Report Type: Report from Study
  Country: AR (occurrence: AR)
  Receive Date: 20180226
  Receipt Date: 20180226
  Transmission Date: 20180509
  Serious: Yes (Other)
  Sender: FDA-Public Use
  Company Number: AR-BAYER-2017-225944

PATIENT
  Age: 65 Year
  Sex: Female

DRUGS (1)
  1. NEXAVAR [Suspect]
     Active Substance: SORAFENIB
     Dosage: 400 MG, QD
     Route: 048
     Dates: start: 201710

REACTIONS (9)
  - Pruritus [None]
  - Blood pressure increased [None]
  - Hypotension [None]
  - Faeces soft [Recovering/Resolving]
  - Hepatitis [Recovering/Resolving]
  - Blood pressure increased [Recovered/Resolved]
  - Oral mucosal blistering [Recovering/Resolving]
  - Hypoaesthesia [None]
  - Off label use [None]

NARRATIVE: CASE EVENT DATE: 2017
